FAERS Safety Report 14757858 (Version 1)
Quarter: 2018Q2

REPORT INFORMATION
  Report Type: Spontaneous
  Country: US (occurrence: US)
  Receive Date: 20180409
  Receipt Date: 20180409
  Transmission Date: 20180711
  Serious: Yes (Other)
  Sender: FDA-Public Use
  Company Number: None

PATIENT
  Age: 89 Year
  Sex: Female
  Weight: 54.43 kg

DRUGS (8)
  1. LOW DOSE ASPIRIN [Concomitant]
     Active Substance: ASPIRIN
  2. METOPROLOL TARTRATE. [Concomitant]
     Active Substance: METOPROLOL TARTRATE
  3. OSCAL [Concomitant]
     Active Substance: CALCIUM CARBONATE
  4. COUMADIN [Suspect]
     Active Substance: WARFARIN SODIUM
     Indication: CEREBROVASCULAR ACCIDENT PROPHYLAXIS
     Dosage: ?          QUANTITY:90 DF DOSAGE FORM;?
     Route: 048
     Dates: start: 2017
  5. STOOL SOFTENER (DOCUSATE) [Concomitant]
     Active Substance: DOCUSATE
  6. OMEPRAZOLE. [Concomitant]
     Active Substance: OMEPRAZOLE
  7. AMLODIPINE [Concomitant]
     Active Substance: AMLODIPINE BESYLATE
  8. OCCUVITE [Concomitant]

REACTIONS (1)
  - Pruritus [None]

NARRATIVE: CASE EVENT DATE: 2017
